FAERS Safety Report 12313196 (Version 2)
Quarter: 2016Q3

REPORT INFORMATION
  Report Type: Spontaneous
  Country: FR (occurrence: FR)
  Receive Date: 20160428
  Receipt Date: 20160803
  Transmission Date: 20161109
  Serious: Yes (Hospitalization)
  Sender: FDA-Public Use
  Company Number: FR-ASTRAZENECA-2016SE43772

PATIENT
  Age: 24654 Day
  Sex: Female

DRUGS (18)
  1. IRESSA [Suspect]
     Active Substance: GEFITINIB
     Indication: METASTASES TO CENTRAL NERVOUS SYSTEM
     Route: 048
     Dates: start: 20160407
  2. INNOHEP [Concomitant]
     Active Substance: TINZAPARIN SODIUM
     Indication: PHLEBITIS
  3. DOXYCYCLINE. [Concomitant]
     Active Substance: DOXYCYCLINE
  4. COTAREG [Concomitant]
     Active Substance: HYDROCHLOROTHIAZIDE\VALSARTAN
  5. DOLIPRANE [Concomitant]
     Active Substance: ACETAMINOPHEN
  6. IRESSA [Suspect]
     Active Substance: GEFITINIB
     Indication: LUNG ADENOCARCINOMA
     Route: 048
     Dates: start: 201602, end: 20160404
  7. SEROPLEX [Concomitant]
     Active Substance: ESCITALOPRAM OXALATE
  8. SPECIAFOLDINE [Concomitant]
     Active Substance: FOLIC ACID
  9. LYRICA [Concomitant]
     Active Substance: PREGABALIN
  10. IRESSA [Suspect]
     Active Substance: GEFITINIB
     Indication: METASTASES TO CENTRAL NERVOUS SYSTEM
     Route: 048
     Dates: start: 201602, end: 20160404
  11. METFORMINE [Concomitant]
     Active Substance: METFORMIN HYDROCHLORIDE
  12. IRESSA [Suspect]
     Active Substance: GEFITINIB
     Indication: LUNG ADENOCARCINOMA
     Route: 048
     Dates: start: 20160407
  13. SIMVASTATINE [Concomitant]
     Active Substance: SIMVASTATIN
  14. XANAX [Concomitant]
     Active Substance: ALPRAZOLAM
  15. INEXIUM [Concomitant]
     Active Substance: ESOMEPRAZOLE
  16. CORTANCYL [Concomitant]
     Active Substance: PREDNISONE
  17. KEPPRA [Concomitant]
     Active Substance: LEVETIRACETAM
     Indication: EPILEPSY
  18. LEVOTHYROX [Concomitant]
     Active Substance: LEVOTHYROXINE

REACTIONS (4)
  - Nausea [Recovered/Resolved]
  - Off label use [Unknown]
  - Prerenal failure [Recovered/Resolved]
  - Diarrhoea [Recovered/Resolved]

NARRATIVE: CASE EVENT DATE: 201602
